FAERS Safety Report 22607764 (Version 1)
Quarter: 2023Q2

REPORT INFORMATION
  Report Type: Spontaneous
  Country: US (occurrence: US)
  Receive Date: 20230616
  Receipt Date: 20230616
  Transmission Date: 20230722
  Serious: No
  Sender: FDA-Public Use
  Company Number: US-ABBVIE-5291532

PATIENT
  Age: 81 Year
  Sex: Male

DRUGS (1)
  1. DURYSTA [Suspect]
     Active Substance: BIMATOPROST
     Indication: Glaucoma
     Dosage: TIME INTERVAL: AS NECESSARY: DOSAGE: 10 MCG 0.01 MG; SINGLE; 11047X; FREQUENCY: ONE TIME
     Route: 031
     Dates: start: 20230613, end: 20230614

REACTIONS (2)
  - Product administered at inappropriate site [Not Recovered/Not Resolved]
  - Implantation complication [Not Recovered/Not Resolved]

NARRATIVE: CASE EVENT DATE: 20230613
